FAERS Safety Report 17000492 (Version 1)
Quarter: 2019Q4

REPORT INFORMATION
  Report Type: Spontaneous
  Country: CN (occurrence: CN)
  Receive Date: 20191106
  Receipt Date: 20191106
  Transmission Date: 20200122
  Serious: Yes (Other)
  Sender: FDA-Public Use
  Company Number: CN-ASTRAZENECA-2019SF55662

PATIENT
  Age: 51 Year
  Sex: Female
  Weight: 52 kg

DRUGS (14)
  1. SODIUM CHLORIDE. [Concomitant]
     Active Substance: SODIUM CHLORIDE
     Indication: ADJUVANT THERAPY
     Dosage: AT 100ML, 0.5 DAYS
     Route: 041
     Dates: start: 20191019, end: 20191022
  2. SODIUM CHLORIDE. [Concomitant]
     Active Substance: SODIUM CHLORIDE
     Indication: ADJUVANT THERAPY
     Dosage: AT 100ML, 0.5 DAYS
     Route: 041
     Dates: start: 20191014, end: 20191018
  3. SODIUM CHLORIDE. [Concomitant]
     Active Substance: SODIUM CHLORIDE
     Indication: ADJUVANT THERAPY
     Dosage: 48ML, 0.5 DAYS
     Route: 065
     Dates: start: 20191014, end: 20191021
  4. NEXIUM [Suspect]
     Active Substance: ESOMEPRAZOLE MAGNESIUM
     Indication: ANTACID THERAPY
     Dosage: NS 100ML+ ESOMEPRAZOLE SODIUM FOR INJECTION 40MG, EVERY 12 HOURS, POWDER INJECTION
     Route: 042
     Dates: start: 20191018, end: 20191020
  5. NEXIUM [Suspect]
     Active Substance: ESOMEPRAZOLE MAGNESIUM
     Indication: PROPHYLAXIS
     Dosage: NS 100ML+ ESOMEPRAZOLE SODIUM FOR INJECTION 40MG, EVERY 12 HOURS, POWDER INJECTION
     Route: 042
     Dates: start: 20191018, end: 20191020
  6. SOMATOSTATIN [Concomitant]
     Active Substance: SOMATOSTATIN
     Indication: UPPER GASTROINTESTINAL HAEMORRHAGE
     Dosage: AT 3MG, 0.5 DAYS
     Route: 065
     Dates: start: 20191014, end: 20191021
  7. PLASMA [Concomitant]
     Active Substance: HUMAN PLASMA
     Dosage: 200 ML FROZEN PLASMA WAS INFUSED
     Dates: start: 20191016
  8. SODIUM CHLORIDE. [Concomitant]
     Active Substance: SODIUM CHLORIDE
     Indication: ADJUVANT THERAPY
     Dosage: AT 40ML, 0.2 DAYS
     Route: 042
     Dates: start: 20191014, end: 20191017
  9. SPOCELIN [Concomitant]
     Indication: INFECTION PROPHYLAXIS
     Dosage: 1G, 0.5 DAYS,
     Route: 041
     Dates: start: 20191014, end: 20191018
  10. NEXIUM [Suspect]
     Active Substance: ESOMEPRAZOLE MAGNESIUM
     Indication: ANTACID THERAPY
     Dosage: AT 40MG, 0.2 DAYS, POWDER INJECTION
     Route: 042
     Dates: start: 20191014, end: 20191017
  11. NEXIUM [Suspect]
     Active Substance: ESOMEPRAZOLE MAGNESIUM
     Indication: PROPHYLAXIS
     Dosage: AT 40MG, 0.2 DAYS, POWDER INJECTION
     Route: 042
     Dates: start: 20191014, end: 20191017
  12. SODIUM CHLORIDE. [Concomitant]
     Active Substance: SODIUM CHLORIDE
     Indication: ADJUVANT THERAPY
     Route: 042
     Dates: start: 20191014, end: 20191015
  13. PLASMA [Concomitant]
     Active Substance: HUMAN PLASMA
     Dosage: 150 ML FROZEN PLASMA WAS INFUSED
     Dates: start: 20191024
  14. SPOCELIN [Concomitant]
     Indication: INFECTION PROPHYLAXIS
     Dosage: NS 100ML+ CEFTIZOXIME 2.0G TWO TIMES A DAY FOR 4 DAYS
     Route: 041
     Dates: start: 20191019, end: 20191022

REACTIONS (1)
  - Blood fibrinogen decreased [Not Recovered/Not Resolved]

NARRATIVE: CASE EVENT DATE: 20191021
